FAERS Safety Report 25014321 (Version 3)
Quarter: 2025Q2

REPORT INFORMATION
  Report Type: Spontaneous
  Country: US (occurrence: US)
  Receive Date: 20250226
  Receipt Date: 20250424
  Transmission Date: 20250716
  Serious: Yes (Disabling)
  Sender: PFIZER
  Company Number: US-PFIZER INC-PV202500022758

PATIENT
  Age: 73 Year
  Sex: Female

DRUGS (2)
  1. PREMARIN [Suspect]
     Active Substance: ESTROGENS, CONJUGATED
  2. ENBREL [Concomitant]
     Active Substance: ETANERCEPT

REACTIONS (1)
  - Spinal operation [Unknown]
